FAERS Safety Report 9674220 (Version 6)
Quarter: 2014Q1

REPORT INFORMATION
  Report Type: Spontaneous
  Country: US (occurrence: US)
  Receive Date: 20131107
  Receipt Date: 20140116
  Transmission Date: 20141002
  Serious: Yes (Death, Other)
  Sender: FDA-Public Use
  Company Number: US-PFIZER INC-2013313206

PATIENT
  Age: 67 Year
  Sex: Male
  Weight: 99.32 kg

DRUGS (1)
  1. REVATIO [Suspect]
     Indication: PULMONARY HYPERTENSION
     Dosage: UNK, 3X/DAY
     Route: 048

REACTIONS (3)
  - Respiratory failure [Fatal]
  - Pulmonary fibrosis [Unknown]
  - Pulmonary hypertension [Unknown]
